FAERS Safety Report 4498479-2 (Version None)
Quarter: 2004Q4

REPORT INFORMATION
  Report Type: 
  Country: None (occurrence: None)
  Receive Date: 20041105
  Receipt Date: 20041026
  Transmission Date: 20050328
  Serious: Yes (Other)
  Sender: FDA-Public Use
  Company Number: 2004-10-1973

PATIENT
  Age: 35 Year

DRUGS (2)
  1. INTRON A [Suspect]
     Indication: MALIGNANT MELANOMA
     Dosage: SEE IMAGE
  2. RADIATION THERAPY [Suspect]
     Indication: MALIGNANT MELANOMA
     Dosage: 2 GY X-RAY THERAPY

REACTIONS (4)
  - ERYTHEMA [None]
  - HAEMORRHAGE [None]
  - SKIN DESQUAMATION [None]
  - THERAPEUTIC AGENT TOXICITY [None]
